FAERS Safety Report 7473062-5 (Version None)
Quarter: 2011Q2

REPORT INFORMATION
  Report Type: 
  Country: None (occurrence: None)
  Receive Date: 20110511
  Receipt Date: 20110429
  Transmission Date: 20111010
  Serious: Yes (Hospitalization)
  Sender: FDA-Public Use
  Company Number: CA-ELI_LILLY_AND_COMPANY-CA201104008061

PATIENT
  Sex: Female

DRUGS (16)
  1. ARICEPT [Concomitant]
  2. COTRIM [Concomitant]
  3. LASIX [Concomitant]
  4. PAXIL [Concomitant]
  5. ASPIRIN [Concomitant]
  6. SEROQUEL [Concomitant]
  7. ATIVAN [Concomitant]
  8. MEMANTINE [Concomitant]
  9. ZYPREXA [Suspect]
     Indication: PARANOID PERSONALITY DISORDER
     Dosage: 2.5 MG, PRN
  10. ZYPREXA [Suspect]
     Dosage: 5 MG, QD
  11. ZYPREXA [Suspect]
     Dosage: 7.5 MG, QD
  12. ZYPREXA [Suspect]
     Dosage: 7.5 MG, BID
  13. RANITIDINE [Concomitant]
  14. ZOPICLONE [Concomitant]
  15. ZYPREXA [Suspect]
     Dosage: 2.5 MG, QD
  16. FERROUS GLUCONATE [Concomitant]

REACTIONS (16)
  - DIABETIC KETOACIDOSIS [None]
  - PANCREATITIS [None]
  - HYPERTENSION [None]
  - PLATELET COUNT INCREASED [None]
  - HYPERNATRAEMIA [None]
  - CONVULSION [None]
  - RENAL FAILURE [None]
  - DEPRESSED LEVEL OF CONSCIOUSNESS [None]
  - UTERINE HAEMORRHAGE [None]
  - TARDIVE DYSKINESIA [None]
  - DIABETIC HYPERGLYCAEMIC COMA [None]
  - SYNCOPE [None]
  - HYPERGLYCAEMIA [None]
  - URINARY TRACT INFECTION [None]
  - DEHYDRATION [None]
  - DIABETES MELLITUS [None]
